FAERS Safety Report 6500118-3 (Version None)
Quarter: 2009Q4

REPORT INFORMATION
  Report Type: 
  Country: None (occurrence: None)
  Receive Date: 20091214
  Receipt Date: 20091214
  Transmission Date: 20100525
  Serious: No
  Sender: FDA-Public Use
  Company Number: None

PATIENT
  Sex: Male
  Weight: 81.6475 kg

DRUGS (1)
  1. FENOGLIDE [Suspect]
     Indication: BLOOD CHOLESTEROL ABNORMAL
     Dosage: ONE 120 MG TABLET ONE TIME DAILY BY MOUTH
     Route: 048
     Dates: start: 20091001, end: 20091204

REACTIONS (3)
  - IMPAIRED HEALING [None]
  - TENDON INJURY [None]
  - TENDONITIS [None]
